FAERS Safety Report 5147644-X (Version None)
Quarter: 2006Q4

REPORT INFORMATION
  Report Type: 
  Country: None (occurrence: None)
  Receive Date: 20060911
  Receipt Date: 20060724
  Transmission Date: 20070319
  Serious: Yes (Life-Threatening)
  Sender: FDA-Public Use
  Company Number: 8332

PATIENT
  Age: 54 Year
  Sex: Female

DRUGS (4)
  1. HYDROMORPHONE 2 MG TABLETS, ETHEX CORPORATION [Suspect]
     Indication: BACK PAIN
     Dosage: 2 MG PO PRN
     Route: 048
     Dates: start: 19940101
  2. OMEPRAZOLE [Concomitant]
  3. BENADRYL [Concomitant]
  4. AMBIEN [Concomitant]

REACTIONS (5)
  - ANAPHYLAXIS TREATMENT [None]
  - BRADYCARDIA [None]
  - DYSPNOEA [None]
  - HYPOTENSION [None]
  - URTICARIA [None]
